FAERS Safety Report 10072512 (Version 2)
Quarter: 2014Q2

REPORT INFORMATION
  Report Type: Spontaneous
  Country: US (occurrence: US)
  Receive Date: 20140411
  Receipt Date: 20140422
  Transmission Date: 20141212
  Serious: Yes (Death, Hospitalization)
  Sender: FDA-Public Use
  Company Number: US-FRI-1000066088

PATIENT
  Age: 51 Year
  Sex: Female
  Weight: 87.09 kg

DRUGS (2)
  1. VIIBRYD [Suspect]
     Indication: ANXIETY
     Dosage: 40 MG
     Route: 048
     Dates: start: 20140219, end: 20140316
  2. XANAX [Concomitant]
     Dosage: 0.5 MG PRN
     Dates: start: 20061227, end: 20140316

REACTIONS (2)
  - Cardiac arrest [Fatal]
  - Off label use [Recovered/Resolved]
